FAERS Safety Report 17887358 (Version 1)
Quarter: 2020Q2

REPORT INFORMATION
  Report Type: Spontaneous
  Country: US (occurrence: US)
  Receive Date: 20200611
  Receipt Date: 20200611
  Transmission Date: 20200714
  Serious: No
  Sender: FDA-Public Use
  Company Number: US-BRACCO-2020US00501

PATIENT
  Age: 48 Year
  Sex: Female

DRUGS (1)
  1. MULTIHANCE [Suspect]
     Active Substance: GADOBENATE DIMEGLUMINE
     Indication: MAGNETIC RESONANCE IMAGING BRAIN
     Dosage: UNK UNK, SINGLE
     Route: 042
     Dates: start: 20200130, end: 20200130

REACTIONS (3)
  - Pharyngeal swelling [Unknown]
  - Sneezing [Unknown]
  - Throat tightness [Unknown]

NARRATIVE: CASE EVENT DATE: 20200120
